FAERS Safety Report 14324242 (Version 1)
Quarter: 2017Q4

REPORT INFORMATION
  Report Type: Spontaneous
  Country: US (occurrence: US)
  Receive Date: 20171222
  Receipt Date: 20171222
  Transmission Date: 20180321
  Serious: Yes (Hospitalization)
  Sender: FDA-Public Use
  Company Number: None

PATIENT
  Age: 84 Year
  Sex: Male
  Weight: 87 kg

DRUGS (1)
  1. CYCLOPHOSPHAMIDE. [Suspect]
     Active Substance: CYCLOPHOSPHAMIDE
     Indication: LYMPHOMA
     Dosage: FREQUENCY - OTHER
     Route: 042
     Dates: start: 20170901, end: 20171031

REACTIONS (3)
  - Wheezing [None]
  - Respiratory depression [None]
  - Cough [None]

NARRATIVE: CASE EVENT DATE: 20171121
